FAERS Safety Report 18164883 (Version 17)
Quarter: 2025Q2

REPORT INFORMATION
  Report Type: Report from Study
  Country: US (occurrence: US)
  Receive Date: 20200818
  Receipt Date: 20250430
  Transmission Date: 20250717
  Serious: Yes (Hospitalization, Other)
  Sender: TAKEDA
  Company Number: US-SHIRE-US202026264

PATIENT
  Age: 67 Year
  Sex: Female
  Weight: 65 kg

DRUGS (34)
  1. TEDUGLUTIDE [Suspect]
     Active Substance: TEDUGLUTIDE
     Indication: Short-bowel syndrome
     Dosage: UNK UNK, QD
     Dates: start: 20190320
  2. TEDUGLUTIDE [Suspect]
     Active Substance: TEDUGLUTIDE
     Indication: Diarrhoea
     Dosage: 0.261 MILLILITER, QD
  3. TEDUGLUTIDE [Suspect]
     Active Substance: TEDUGLUTIDE
     Indication: Malabsorption
     Dosage: 0.25 MILLILITER, QD
  4. TEDUGLUTIDE [Suspect]
     Active Substance: TEDUGLUTIDE
     Dosage: 0.25 MILLILITER, QD
  5. TEDUGLUTIDE [Suspect]
     Active Substance: TEDUGLUTIDE
     Dosage: 0.25 MILLILITER, QOD
  6. TEDUGLUTIDE [Suspect]
     Active Substance: TEDUGLUTIDE
     Dosage: 2.5 MILLIGRAM, QD
  7. TEDUGLUTIDE [Suspect]
     Active Substance: TEDUGLUTIDE
  8. TEDUGLUTIDE [Suspect]
     Active Substance: TEDUGLUTIDE
     Dosage: 0.25 MILLILITER, QOD
  9. TEDUGLUTIDE [Suspect]
     Active Substance: TEDUGLUTIDE
     Dosage: 2.5 MILLIGRAM, QOD
  10. IMODIUM [Concomitant]
     Active Substance: LOPERAMIDE HYDROCHLORIDE
     Indication: Malabsorption
     Dosage: 6 MILLIGRAM, QID
  11. OPIUM TINCTURE [Concomitant]
     Active Substance: MORPHINE
     Indication: Malabsorption
     Dosage: 0.3 MILLILITER, QID
  12. CALCIUM [Concomitant]
     Active Substance: CALCIUM
  13. PROMETHAZINE [Concomitant]
     Active Substance: PROMETHAZINE HYDROCHLORIDE
  14. XANAX [Concomitant]
     Active Substance: ALPRAZOLAM
  15. ASCORBIC ACID [Concomitant]
     Active Substance: ASCORBIC ACID
  16. MAGNESIUM [Concomitant]
     Active Substance: MAGNESIUM
  17. VANCOCIN [Concomitant]
     Active Substance: VANCOMYCIN HYDROCHLORIDE
  18. OXYCODONE [Concomitant]
     Active Substance: OXYCODONE
  19. METOPROLOL [Concomitant]
     Active Substance: METOPROLOL
  20. ASPIRIN [Concomitant]
     Active Substance: ASPIRIN
  21. CREON [Concomitant]
     Active Substance: PANCRELIPASE AMYLASE\PANCRELIPASE LIPASE\PANCRELIPASE PROTEASE
  22. BUTALBITAL [Concomitant]
     Active Substance: BUTALBITAL
  23. SUMATRIPTAN [Concomitant]
     Active Substance: SUMATRIPTAN
  24. DULOXETINE [Concomitant]
     Active Substance: DULOXETINE
  25. METHOCARBAMOL [Concomitant]
     Active Substance: METHOCARBAMOL
  26. LOPERAMIDE [Concomitant]
     Active Substance: LOPERAMIDE
  27. ONDANSETRON [Concomitant]
     Active Substance: ONDANSETRON
  28. CARDIZEM [Concomitant]
     Active Substance: DILTIAZEM HYDROCHLORIDE
  29. VITAMIN D2 [Concomitant]
     Active Substance: ERGOCALCIFEROL
  30. PROMETHAZINE HYDROCHLORIDE [Concomitant]
     Active Substance: PROMETHAZINE HYDROCHLORIDE
  31. METOPROLOL TARTRATE [Concomitant]
     Active Substance: METOPROLOL TARTRATE
  32. PROCHLORPERAZINE MALEATE [Concomitant]
     Active Substance: PROCHLORPERAZINE MALEATE
  33. SUMATRIPTAN SUCCINATE [Concomitant]
     Active Substance: SUMATRIPTAN SUCCINATE
  34. DULOXETINE HYDROCHLORIDE [Concomitant]
     Active Substance: DULOXETINE HYDROCHLORIDE

REACTIONS (18)
  - Abdominal discomfort [Recovered/Resolved]
  - Clostridium difficile colitis [Recovering/Resolving]
  - Vascular device infection [Unknown]
  - Infection [Unknown]
  - Small intestinal obstruction [Recovered/Resolved]
  - Vomiting [Recovered/Resolved]
  - Nausea [Unknown]
  - Diarrhoea [Not Recovered/Not Resolved]
  - Oropharyngeal pain [Recovering/Resolving]
  - Urinary tract infection [Unknown]
  - Aphonia [Unknown]
  - Dehydration [Unknown]
  - Weight fluctuation [Unknown]
  - Abdominal distension [Unknown]
  - Flatulence [Unknown]
  - Expired product administered [Unknown]
  - Dyspnoea [Unknown]
  - Cough [Unknown]

NARRATIVE: CASE EVENT DATE: 20200727
